FAERS Safety Report 9111995 (Version 1)
Quarter: 2013Q1

REPORT INFORMATION
  Report Type: Spontaneous
  Country: US (occurrence: US)
  Receive Date: 20130219
  Receipt Date: 20130219
  Transmission Date: 20140127
  Serious: No
  Sender: FDA-Public Use
  Company Number: US-BRISTOL-MYERS SQUIBB COMPANY-17032293

PATIENT
  Age: 63 Year
  Sex: Male

DRUGS (11)
  1. ABATACEPT SUBQ INJECTION 125MG/ML [Suspect]
     Indication: RHEUMATOID ARTHRITIS
     Dosage: 1DF:125MG/1ML?4 PACK
     Route: 058
     Dates: start: 201204
  2. PANTOPRAZOLE [Concomitant]
     Dosage: TABS
  3. LOPRESSOR [Concomitant]
     Dosage: TABS
  4. LIPITOR [Concomitant]
     Dosage: TABS
  5. NIASPAN [Concomitant]
     Dosage: TABLET ER
  6. TRICOR [Concomitant]
     Dosage: TABS
  7. IMURAN [Concomitant]
     Dosage: TAB
  8. ZETIA [Concomitant]
     Dosage: TABS
  9. PLAVIX [Concomitant]
     Dosage: TABS
  10. ALTACE [Concomitant]
     Dosage: CAPS
  11. ASPIRIN [Concomitant]
     Dosage: CHIL CHW

REACTIONS (1)
  - Oral herpes [Unknown]
